FAERS Safety Report 6869088-2 (Version None)
Quarter: 2010Q3

REPORT INFORMATION
  Report Type: 
  Country: None (occurrence: None)
  Receive Date: 20100722
  Receipt Date: 20100722
  Transmission Date: 20110219
  Serious: Yes (Hospitalization)
  Sender: FDA-Public Use
  Company Number: None

PATIENT
  Sex: Female
  Weight: 56.7 kg

DRUGS (2)
  1. TAXOL [Suspect]
     Dosage: 280 MG
     Dates: end: 20100630
  2. TOPOTECAN [Suspect]
     Dosage: 1.2 MG
     Dates: end: 20100702

REACTIONS (6)
  - ABDOMINAL PAIN LOWER [None]
  - HAEMATURIA [None]
  - ILEUS [None]
  - PANCYTOPENIA [None]
  - PRODUCTIVE COUGH [None]
  - TOBACCO USER [None]
